FAERS Safety Report 13211241 (Version 1)
Quarter: 2017Q1

REPORT INFORMATION
  Report Type: Spontaneous
  Country: US (occurrence: US)
  Receive Date: 20170210
  Receipt Date: 20170210
  Transmission Date: 20170428
  Serious: Yes (Other)
  Sender: FDA-Public Use
  Company Number: None

PATIENT
  Age: 74 Year
  Sex: Female
  Weight: 65.3 kg

DRUGS (1)
  1. IBRANCE [Suspect]
     Active Substance: PALBOCICLIB
     Indication: BREAST CANCER
     Dosage: 1 CAPSULE ONE DAILY BY MOUTH
     Route: 048

REACTIONS (3)
  - Vaginal haemorrhage [None]
  - Epistaxis [None]
  - Platelet count decreased [None]

NARRATIVE: CASE EVENT DATE: 20170210
